FAERS Safety Report 23425117 (Version 1)
Quarter: 2024Q1

REPORT INFORMATION
  Report Type: Spontaneous
  Country: US (occurrence: US)
  Receive Date: 20240121
  Receipt Date: 20240121
  Transmission Date: 20240410
  Serious: Yes (Other)
  Sender: FDA-Public Use
  Company Number: US-ABBVIE-5592920

PATIENT
  Sex: Female

DRUGS (2)
  1. QULIPTA [Suspect]
     Active Substance: ATOGEPANT
     Indication: Product used for unknown indication
     Route: 048
  2. NURTEC ODT [Suspect]
     Active Substance: RIMEGEPANT SULFATE
     Indication: Product used for unknown indication
     Route: 065

REACTIONS (10)
  - Loss of consciousness [Unknown]
  - Migraine [Unknown]
  - Drug ineffective [Unknown]
  - Drug ineffective [Unknown]
  - Unevaluable event [Unknown]
  - Vomiting [Unknown]
  - Migraine [Unknown]
  - Adverse drug reaction [Unknown]
  - Disability [Unknown]
  - Impaired driving ability [Unknown]
